FAERS Safety Report 24643056 (Version 2)
Quarter: 2024Q4

REPORT INFORMATION
  Report Type: Spontaneous
  Country: CA (occurrence: CA)
  Receive Date: 20241120
  Receipt Date: 20241127
  Transmission Date: 20250115
  Serious: Yes (Other)
  Sender: PFIZER
  Company Number: CA-PFIZER INC-202400304779

PATIENT
  Age: 69 Year
  Sex: Female

DRUGS (5)
  1. XELJANZ [Suspect]
     Active Substance: TOFACITINIB CITRATE
     Indication: Psoriatic arthropathy
     Dosage: 5 MG, 2X/DAY
     Route: 048
     Dates: start: 20210131, end: 202312
  2. XELJANZ [Suspect]
     Active Substance: TOFACITINIB CITRATE
     Dosage: 5 MG, 2X/DAY
     Route: 048
     Dates: start: 2024
  3. INFLECTRA [Concomitant]
     Active Substance: INFLIXIMAB-DYYB
     Dosage: 1 DF, DOSAGE UNKNOWN DISCONTINUED
  4. METHOTREXATE [Concomitant]
     Active Substance: METHOTREXATE
     Dosage: 1 DF, DOSAGE UNKNOWN
     Route: 065
     Dates: start: 201808
  5. SULFASALAZINE [Concomitant]
     Active Substance: SULFASALAZINE
     Indication: Psoriatic arthropathy
     Dosage: 500 MG, 2X/DAY

REACTIONS (5)
  - Cataract [Not Recovered/Not Resolved]
  - Neuropathy peripheral [Unknown]
  - Tooth disorder [Unknown]
  - Urinary tract infection [Unknown]
  - Condition aggravated [Unknown]
